FAERS Safety Report 8308693-3 (Version None)
Quarter: 2012Q2

REPORT INFORMATION
  Report Type: 
  Country: None (occurrence: None)
  Receive Date: 20120420
  Receipt Date: 20120420
  Transmission Date: 20120825
  Serious: Yes (Other)
  Sender: FDA-Public Use
  Company Number: None

PATIENT
  Weight: 53.0709 kg

DRUGS (1)
  1. OPANA [Suspect]
     Indication: MUSCULOSKELETAL DISORDER
     Dosage: 2 X DAILY EVERDAY
     Dates: start: 20120301, end: 20120401

REACTIONS (3)
  - PRODUCT FORMULATION ISSUE [None]
  - MEDICATION RESIDUE [None]
  - GASTRIC DISORDER [None]
